FAERS Safety Report 4781489-5 (Version None)
Quarter: 2005Q3

REPORT INFORMATION
  Report Type: 
  Country: None (occurrence: None)
  Receive Date: 20050928
  Receipt Date: 20050708
  Transmission Date: 20060218
  Serious: Yes (Death, Hospitalization)
  Sender: FDA-Public Use
  Company Number: PHBS2005JP09983

PATIENT
  Sex: Male

DRUGS (1)
  1. LAMISIL [Suspect]
     Route: 048

REACTIONS (6)
  - DEMENTIA [None]
  - GASTROINTESTINAL TUBE INSERTION [None]
  - HEPATIC ENZYME INCREASED [None]
  - INFECTION [None]
  - LIVER FUNCTION TEST ABNORMAL [None]
  - SURGERY [None]
